FAERS Safety Report 5475337-8 (Version None)
Quarter: 2007Q4

REPORT INFORMATION
  Report Type: 
  Country: None (occurrence: None)
  Receive Date: 20071001
  Receipt Date: 20070418
  Transmission Date: 20080405
  Serious: Yes (Other)
  Sender: FDA-Public Use
  Company Number: 2007MP000503

PATIENT

DRUGS (2)
  1. GLIADEL [Suspect]
     Indication: MALIGNANT GLIOMA
     Dosage: X1; ICER
  2. TEMOZOLOMIDE [Suspect]
     Indication: MALIGNANT GLIOMA
     Dosage: 200MG/M**2; QD; PO;  75 MG/M**; QD; PO;
     Route: 048

REACTIONS (8)
  - DISEASE PROGRESSION [None]
  - DRUG TOXICITY [None]
  - HAEMATOTOXICITY [None]
  - NEUROTOXICITY [None]
  - NEUTROPENIA [None]
  - PANCYTOPENIA [None]
  - THROMBOCYTOPENIA [None]
  - WOUND INFECTION [None]
